FAERS Safety Report 8553583-4 (Version None)
Quarter: 2012Q3

REPORT INFORMATION
  Report Type: 
  Country: None (occurrence: None)
  Receive Date: 20120731
  Receipt Date: 20120725
  Transmission Date: 20120928
  Serious: No
  Sender: FDA-Public Use
  Company Number: US-BAYER-2012-075938

PATIENT
  Age: 81 Year
  Sex: Male
  Weight: 77 kg

DRUGS (3)
  1. NAPROXEN (ALEVE) [Suspect]
     Indication: PAIN
     Dosage: 1 DF, PRN
     Route: 048
     Dates: start: 20120718
  2. ANTIHYPERTENSIVES [Concomitant]
  3. HERBAL PREPARATION [Concomitant]

REACTIONS (1)
  - PAIN [None]
